FAERS Safety Report 14253005 (Version 1)
Quarter: 2017Q4

REPORT INFORMATION
  Report Type: Spontaneous
  Country: DE (occurrence: DE)
  Receive Date: 20171205
  Receipt Date: 20171205
  Transmission Date: 20180321
  Serious: Yes (Hospitalization)
  Sender: FDA-Public Use
  Company Number: DE-TEVA-2017-DE-827920

PATIENT
  Age: 56 Year
  Sex: Female
  Weight: 76 kg

DRUGS (3)
  1. MYCOPHENOLATE MOFETIL. [Suspect]
     Active Substance: MYCOPHENOLATE MOFETIL
     Indication: IMMUNOSUPPRESSION
     Dosage: 500 MG, BID
     Route: 048
     Dates: start: 20160716
  2. MIDOSTAURIN [Concomitant]
     Active Substance: MIDOSTAURIN
     Indication: ACUTE MYELOID LEUKAEMIA
     Dosage: 50 MG, BID
     Route: 048
     Dates: start: 20160517, end: 20160705
  3. CICLOSPORIN [Suspect]
     Active Substance: CYCLOSPORINE
     Indication: IMMUNOSUPPRESSION
     Dosage: 100 MG, BID
     Route: 048
     Dates: start: 20160714

REACTIONS (1)
  - Otitis media [Recovering/Resolving]

NARRATIVE: CASE EVENT DATE: 20160819
